FAERS Safety Report 26172653 (Version 1)
Quarter: 2025Q4

REPORT INFORMATION
  Report Type: Spontaneous
  Country: CN (occurrence: CN)
  Receive Date: 20251218
  Receipt Date: 20251218
  Transmission Date: 20260119
  Serious: Yes (Life-Threatening)
  Sender: SHENZHEN TECHDOW PHARMACEUTICAL
  Company Number: CN-adr44030518216-HPR2025000862

PATIENT
  Age: 91 Year
  Sex: Female
  Weight: 37 kg

DRUGS (4)
  1. ENOXAPARIN SODIUM [Suspect]
     Active Substance: ENOXAPARIN SODIUM
     Indication: Thrombosis prophylaxis
     Dosage: 3000IU,QD
     Dates: start: 20251125, end: 20251126
  2. CILOSTAZOL [Suspect]
     Active Substance: CILOSTAZOL
     Indication: Peripheral arterial occlusive disease
     Dosage: 100MG,BID
     Dates: start: 20251125, end: 20251126
  3. ASPIRIN [Suspect]
     Active Substance: ASPIRIN
     Indication: Peripheral arterial occlusive disease
     Dosage: 100MG,QD
     Dates: start: 20251125, end: 20251126
  4. ATORVASTATIN CALCIUM [Concomitant]
     Active Substance: ATORVASTATIN CALCIUM
     Indication: Peripheral arterial occlusive disease
     Dosage: 20MG,QD
     Dates: start: 20251125, end: 20251126

REACTIONS (2)
  - Subdural haematoma [Not Recovered/Not Resolved]
  - Brain herniation [Not Recovered/Not Resolved]

NARRATIVE: CASE EVENT DATE: 20251126
